FAERS Safety Report 15038026 (Version 1)
Quarter: 2018Q2

REPORT INFORMATION
  Report Type: Report from Study
  Country: US (occurrence: US)
  Receive Date: 20180620
  Receipt Date: 20180620
  Transmission Date: 20180711
  Serious: Yes (Other)
  Sender: FDA-Public Use
  Company Number: US-MYLANLABS-2018M1042402

PATIENT
  Age: 26 Year
  Sex: Female

DRUGS (1)
  1. GLATIRAMER ACETATE INJECTION [Suspect]
     Active Substance: GLATIRAMER ACETATE
     Indication: RELAPSING-REMITTING MULTIPLE SCLEROSIS
     Dosage: 40 MG,  3 X PER WEEK
     Route: 058

REACTIONS (6)
  - Pain in extremity [Recovered/Resolved]
  - Hypoaesthesia [Not Recovered/Not Resolved]
  - Abortion [Recovered/Resolved]
  - Injection site pain [Recovered/Resolved]
  - Feeling hot [Not Recovered/Not Resolved]
  - Maternal exposure during pregnancy [Recovered/Resolved]

NARRATIVE: CASE EVENT DATE: 20180605
